FAERS Safety Report 14523948 (Version 1)
Quarter: 2018Q1

REPORT INFORMATION
  Report Type: Spontaneous
  Country: DE (occurrence: DE)
  Receive Date: 20180213
  Receipt Date: 20180213
  Transmission Date: 20180509
  Serious: Yes (Other)
  Sender: FDA-Public Use
  Company Number: DE-CIPLA LTD.-2018DE04645

PATIENT

DRUGS (6)
  1. FOLIC ACID. [Suspect]
     Active Substance: FOLIC ACID
     Dosage: UNK, 5 [MG/D ]/ DOSAGE REDUCTION TO 0.8 MG/D FROM WEEK 10
     Route: 064
     Dates: start: 20161101, end: 20170806
  2. AFLURIA [Suspect]
     Active Substance: INFLUENZA VIRUS VACCINE TRIVALENT TYPE A+B AFLURIA
     Dosage: UNK
     Route: 064
     Dates: start: 20170127, end: 20170127
  3. LEVETIRACETAM. [Suspect]
     Active Substance: LEVETIRACETAM
     Dosage: UNK, 3500 [MG/D]
     Route: 064
     Dates: start: 20170314, end: 20170806
  4. LEVOTHYROXINE SODIUM. [Suspect]
     Active Substance: LEVOTHYROXINE SODIUM
     Dosage: UNK, 50 [?G/D ]/ 25-50 ?G/D
     Route: 064
     Dates: start: 20161101, end: 20170806
  5. OXCARBAZEPINE. [Suspect]
     Active Substance: OXCARBAZEPINE
     Dosage: UNK, 2250 [MG/D ]/ INITIAL 1650MG/D, DOSAGE INCREASE TO 2250MG/D FROM WEEK 19
     Route: 064
     Dates: start: 20161101, end: 20170806
  6. LORAZEPAM. [Suspect]
     Active Substance: LORAZEPAM
     Dosage: UNK, 1 [MG/D ]/ ONLY TWICE
     Route: 064
     Dates: start: 20161226, end: 20170214

REACTIONS (3)
  - Foetal exposure during pregnancy [Unknown]
  - Hyponatraemia [Recovered/Resolved]
  - Convulsion neonatal [Recovered/Resolved]

NARRATIVE: CASE EVENT DATE: 20170806
